FAERS Safety Report 19512082 (Version 2)
Quarter: 2021Q3

REPORT INFORMATION
  Report Type: Spontaneous
  Country: US (occurrence: US)
  Receive Date: 20210709
  Receipt Date: 20210714
  Transmission Date: 20211014
  Serious: Yes (Other)
  Sender: FDA-Public Use
  Company Number: US-ALKERMES INC.-ALK-2021-003449

PATIENT
  Sex: Male

DRUGS (1)
  1. VIVITROL [Suspect]
     Active Substance: NALTREXONE
     Indication: ALCOHOLISM
     Dosage: 380 MILLIGRAM, QMO
     Route: 030

REACTIONS (6)
  - Hernia [Recovered/Resolved]
  - Foot fracture [Recovered/Resolved]
  - Drug use disorder [Unknown]
  - Procedural pain [Recovered/Resolved]
  - Drug dependence [Not Recovered/Not Resolved]
  - Alcoholism [Not Recovered/Not Resolved]
